FAERS Safety Report 4597179-8 (Version None)
Quarter: 2005Q1

REPORT INFORMATION
  Report Type: 
  Country: None (occurrence: None)
  Receive Date: 20050225
  Receipt Date: 20040415
  Transmission Date: 20050727
  Serious: Yes (Other)
  Sender: FDA-Public Use
  Company Number: 200310462BBE

PATIENT
  Age: 26 Year
  Sex: Male

DRUGS (2)
  1. GAMIMUNE N 10% [Suspect]
     Indication: HYPOGAMMAGLOBULINAEMIA
     Dosage: INTRAVENOUS
     Route: 042
     Dates: start: 20020101, end: 20020701
  2. GAMMAGARD S/D [Suspect]
     Indication: HYPOGAMMAGLOBULINAEMIA
     Dosage: 50 G, INTRAVENOUS
     Route: 042
     Dates: start: 20020828

REACTIONS (5)
  - HEPATITIS C [None]
  - HYPERHIDROSIS [None]
  - INFLUENZA LIKE ILLNESS [None]
  - PALLOR [None]
  - TYMPANIC MEMBRANE DISORDER [None]
